FAERS Safety Report 15331020 (Version 1)
Quarter: 2018Q3

REPORT INFORMATION
  Report Type: Spontaneous
  Country: US (occurrence: US)
  Receive Date: 20180829
  Receipt Date: 20180829
  Transmission Date: 20181010
  Serious: No
  Sender: FDA-Public Use
  Company Number: US-BEH-2018094319

PATIENT
  Age: 7 Year
  Sex: Male

DRUGS (1)
  1. HIZENTRA [Suspect]
     Active Substance: HUMAN IMMUNOGLOBULIN G
     Indication: HUMORAL IMMUNE DEFECT
     Dosage: 7 G, QOW
     Route: 058
     Dates: start: 20160302

REACTIONS (1)
  - Headache [Unknown]

NARRATIVE: CASE EVENT DATE: 20180701
